FAERS Safety Report 9025242 (Version 4)
Quarter: 2013Q3

REPORT INFORMATION
  Report Type: Spontaneous
  Country: US (occurrence: US)
  Receive Date: 20130122
  Receipt Date: 20130809
  Transmission Date: 20140515
  Serious: Yes (Other)
  Sender: FDA-Public Use
  Company Number: US-ROCHE-792074

PATIENT
  Age: 27 Year
  Sex: Female
  Weight: 52.21 kg

DRUGS (7)
  1. ACCUTANE [Suspect]
     Indication: ACNE
     Route: 065
  2. ACCUTANE [Suspect]
     Route: 048
  3. ACCUTANE [Suspect]
     Dosage: DOSE INCREASED
     Route: 048
     Dates: start: 20040224, end: 20040623
  4. AMNESTEEM [Suspect]
     Indication: ACNE
     Route: 065
     Dates: start: 2002, end: 2004
  5. AMNESTEEM [Suspect]
     Route: 065
     Dates: start: 200402, end: 200403
  6. SOTRET [Suspect]
     Indication: ACNE
     Route: 065
     Dates: start: 200401, end: 200402
  7. SOTRET [Suspect]
     Route: 065
     Dates: start: 200403, end: 200406

REACTIONS (11)
  - Colitis ulcerative [Unknown]
  - Inflammatory bowel disease [Unknown]
  - Depression [Unknown]
  - Suicidal ideation [Unknown]
  - Irritable bowel syndrome [Recovering/Resolving]
  - Blood cholesterol increased [Unknown]
  - Blood triglycerides increased [Unknown]
  - Skin irritation [Unknown]
  - Dry skin [Unknown]
  - Dyshidrotic eczema [Unknown]
  - Headache [Recovered/Resolved]
